FAERS Safety Report 5805984-2 (Version None)
Quarter: 2008Q3

REPORT INFORMATION
  Report Type: 
  Country: None (occurrence: None)
  Receive Date: 20080710
  Receipt Date: 20080630
  Transmission Date: 20090109
  Serious: Yes (Other)
  Sender: FDA-Public Use
  Company Number: B0360889A

PATIENT
  Age: 39 Year
  Sex: Female

DRUGS (4)
  1. PAROXETINE HCL [Suspect]
     Route: 065
     Dates: start: 20020624, end: 20040101
  2. DIAZEPAM [Concomitant]
     Dates: start: 20030912
  3. PROZAC [Concomitant]
     Dates: start: 20040206
  4. CIPRAMIL [Concomitant]
     Dates: start: 20040220

REACTIONS (18)
  - AMNESIA [None]
  - ANXIETY [None]
  - ASTHENIA [None]
  - CHILLS [None]
  - DIZZINESS [None]
  - FATIGUE [None]
  - HEADACHE [None]
  - HOT FLUSH [None]
  - HYPERHIDROSIS [None]
  - MALAISE [None]
  - NAUSEA [None]
  - PALLOR [None]
  - PANIC ATTACK [None]
  - POOR QUALITY SLEEP [None]
  - TREMOR [None]
  - VOMITING [None]
  - WHEEZING [None]
  - WITHDRAWAL SYNDROME [None]
